FAERS Safety Report 24918325 (Version 1)
Quarter: 2025Q1

REPORT INFORMATION
  Report Type: Spontaneous
  Country: FR (occurrence: FR)
  Receive Date: 20250203
  Receipt Date: 20250203
  Transmission Date: 20250408
  Serious: Yes (Life-Threatening)
  Sender: NOVARTIS
  Company Number: None

PATIENT
  Age: 52 Year
  Sex: Female
  Weight: 73 kg

DRUGS (1)
  1. LUTATHERA [Suspect]
     Active Substance: LUTETIUM OXODOTREOTIDE LU-177
     Indication: Neuroendocrine tumour
     Route: 042
     Dates: start: 20221017, end: 20230220

REACTIONS (1)
  - Myelodysplastic syndrome with excess blasts [Not Recovered/Not Resolved]

NARRATIVE: CASE EVENT DATE: 20241203
